FAERS Safety Report 10897001 (Version 1)
Quarter: 2015Q1

REPORT INFORMATION
  Report Type: Spontaneous
  Country: US (occurrence: US)
  Receive Date: 20150309
  Receipt Date: 20150309
  Transmission Date: 20150721
  Serious: No
  Sender: FDA-Public Use
  Company Number: US-ELI_LILLY_AND_COMPANY-US201502004378

PATIENT
  Sex: Female

DRUGS (3)
  1. RALOXIFENE HYDROCHLORIDE. [Suspect]
     Active Substance: RALOXIFENE HYDROCHLORIDE
     Indication: OSTEOPOROSIS
     Dosage: 60 MG, QD
     Route: 065
     Dates: start: 201412
  2. LISINOPRIL. [Concomitant]
     Active Substance: LISINOPRIL
     Dosage: UNK, UNKNOWN
  3. EVISTA [Suspect]
     Active Substance: RALOXIFENE HYDROCHLORIDE
     Indication: OSTEOPOROSIS
     Dosage: UNK, UNKNOWN
     Route: 065
     Dates: start: 201502

REACTIONS (11)
  - Upper limb fracture [Unknown]
  - Muscle spasms [Recovered/Resolved]
  - Fear of injection [Unknown]
  - Pain in extremity [Recovered/Resolved]
  - Contusion [Unknown]
  - Cataract [Unknown]
  - Visual acuity reduced [Recovered/Resolved]
  - Visual impairment [Recovered/Resolved]
  - Muscular weakness [Recovered/Resolved]
  - Arthralgia [Recovered/Resolved]
  - Accommodation disorder [Recovered/Resolved]

NARRATIVE: CASE EVENT DATE: 2006
